FAERS Safety Report 9129719 (Version 1)
Quarter: 2013Q1

REPORT INFORMATION
  Report Type: Spontaneous
  Country: US (occurrence: US)
  Receive Date: 20130228
  Receipt Date: 20130228
  Transmission Date: 20140127
  Serious: No
  Sender: FDA-Public Use
  Company Number: US-PFIZER INC-2013067675

PATIENT
  Age: 82 Year
  Sex: Female
  Weight: 45.81 kg

DRUGS (5)
  1. TOVIAZ [Suspect]
     Indication: INCONTINENCE
     Dosage: 8 MG, 1X/DAY
     Dates: start: 2012
  2. CYMBALTA [Concomitant]
     Dosage: 60 MG, UNK
  3. SAVELLA [Concomitant]
     Dosage: 50 MG, UNK
  4. FUROSEMIDE [Concomitant]
     Indication: SWELLING
     Dosage: UNK
  5. NIFEDIPINE [Concomitant]
     Indication: CARDIAC DISORDER
     Dosage: UNK

REACTIONS (2)
  - Drug ineffective [Unknown]
  - Pollakiuria [Unknown]
